FAERS Safety Report 4922548-3 (Version None)
Quarter: 2006Q1

REPORT INFORMATION
  Report Type: 
  Country: None (occurrence: None)
  Receive Date: 20060224
  Receipt Date: 20051123
  Transmission Date: 20060701
  Serious: Yes (Other)
  Sender: FDA-Public Use
  Company Number: BR-GLAXOSMITHKLINE-A0584306A

PATIENT
  Age: 21 Year
  Sex: Female
  Weight: 69 kg

DRUGS (2)
  1. LAMICTAL [Suspect]
     Indication: CONVULSION
     Dosage: 100MG PER DAY
     Route: 048
     Dates: start: 20051001, end: 20051020
  2. CITALOPRAM [Concomitant]
     Dosage: 30MG PER DAY
     Dates: start: 20041101

REACTIONS (7)
  - DYSPNOEA [None]
  - ECZEMA [None]
  - EYE IRRITATION [None]
  - PRURITUS [None]
  - PYREXIA [None]
  - SKIN EXFOLIATION [None]
  - STEVENS-JOHNSON SYNDROME [None]
